FAERS Safety Report 17783004 (Version 1)
Quarter: 2020Q2

REPORT INFORMATION
  Report Type: Spontaneous
  Country: US (occurrence: US)
  Receive Date: 20200514
  Receipt Date: 20200514
  Transmission Date: 20200714
  Serious: No
  Sender: FDA-Public Use
  Company Number: None

PATIENT
  Age: 64 Year
  Sex: Male
  Weight: 62.1 kg

DRUGS (2)
  1. HALOBETASOL PROPRIONATE [Suspect]
     Active Substance: HALOBETASOL PROPIONATE
     Indication: PSORIASIS
     Dosage: ?          QUANTITY:50 GRAMS;?
     Route: 061
     Dates: start: 20200511, end: 20200513
  2. CENTRUM MULTIVITAMIN [Concomitant]

REACTIONS (3)
  - Erythema [None]
  - Pain [None]
  - Drug ineffective [None]

NARRATIVE: CASE EVENT DATE: 20200512
